FAERS Safety Report 4939637-X (Version None)
Quarter: 2006Q1

REPORT INFORMATION
  Report Type: 
  Country: None (occurrence: None)
  Receive Date: 20060310
  Receipt Date: 20060228
  Transmission Date: 20060701
  Serious: Yes (Other)
  Sender: FDA-Public Use
  Company Number: US-JNJFOC-20060301333

PATIENT
  Sex: Male
  Weight: 120.2 kg

DRUGS (11)
  1. DURAGESIC-100 [Suspect]
     Route: 062
  2. DURAGESIC-100 [Suspect]
     Route: 062
  3. DURAGESIC-100 [Suspect]
     Route: 062
  4. DURAGESIC-100 [Suspect]
     Route: 062
  5. DURAGESIC-100 [Suspect]
     Route: 062
  6. OXYCODONE [Concomitant]
     Indication: BREAKTHROUGH PAIN
     Route: 048
  7. SOMA [Concomitant]
     Route: 048
  8. PEPCID [Concomitant]
     Indication: GASTRIC DISORDER
     Route: 048
  9. METOCLOPRAMIDE [Concomitant]
     Indication: GASTRIC DISORDER
     Route: 048
  10. SENNA [Concomitant]
     Indication: CONSTIPATION
     Route: 048
  11. LUNESTA [Concomitant]
     Indication: SLEEP DISORDER
     Route: 048

REACTIONS (4)
  - ARTERIAL OCCLUSIVE DISEASE [None]
  - HYPERHIDROSIS [None]
  - PHARMACEUTICAL PRODUCT COMPLAINT [None]
  - THERAPEUTIC RESPONSE DECREASED [None]
